FAERS Safety Report 9206903 (Version 2)
Quarter: 2013Q4

REPORT INFORMATION
  Report Type: Spontaneous
  Country: US (occurrence: US)
  Receive Date: 20130403
  Receipt Date: 20131216
  Transmission Date: 20140711
  Serious: Yes (Other)
  Sender: FDA-Public Use
  Company Number: US-BAYER-2013-041271

PATIENT
  Age: 30 Year
  Sex: Female

DRUGS (6)
  1. YASMIN [Suspect]
     Dosage: UNK
     Route: 048
     Dates: start: 20081208
  2. OCELLA [Suspect]
     Dosage: UNK
     Route: 048
     Dates: start: 20081208
  3. GIANVI [Suspect]
     Dosage: UNK
     Route: 048
     Dates: start: 20081208
  4. YAZ [Suspect]
     Dosage: UNK
     Route: 048
     Dates: start: 20081208
  5. HYDROCODONE W/APAP [Concomitant]
     Dosage: 5 MG, PRN 1 TABLET EVERY 6 HOURS
     Route: 048
  6. HYDROCODONE W/APAP [Concomitant]
     Dosage: 500 MG, PRN1 TABLET EVERY 6 HOURS
     Route: 048

REACTIONS (9)
  - Gallbladder injury [None]
  - Cholecystitis chronic [None]
  - Deep vein thrombosis [None]
  - Anxiety [None]
  - Injury [None]
  - Pain [None]
  - Emotional distress [None]
  - General physical health deterioration [None]
  - Pain [None]
